FAERS Safety Report 22038976 (Version 1)
Quarter: 2023Q1

REPORT INFORMATION
  Report Type: Spontaneous
  Country: US (occurrence: US)
  Receive Date: 20230227
  Receipt Date: 20230227
  Transmission Date: 20230418
  Serious: No
  Sender: FDA-Public Use
  Company Number: US-SA-SAC20230224001576

PATIENT
  Sex: Female

DRUGS (4)
  1. KEVZARA [Suspect]
     Active Substance: SARILUMAB
     Indication: Rheumatoid arthritis
     Dosage: 200 MG, QOW
     Route: 058
  2. KEVZARA [Suspect]
     Active Substance: SARILUMAB
     Indication: Type 2 diabetes mellitus
  3. KEVZARA [Suspect]
     Active Substance: SARILUMAB
     Indication: Depression
  4. KEVZARA [Suspect]
     Active Substance: SARILUMAB
     Indication: Essential hypertension

REACTIONS (1)
  - Drug ineffective for unapproved indication [Unknown]
